FAERS Safety Report 8922408 (Version 1)
Quarter: 2012Q4

REPORT INFORMATION
  Report Type: 
  Country: GB (occurrence: GB)
  Receive Date: 20121123
  Receipt Date: 20121123
  Transmission Date: 20130627
  Serious: Yes (Hospitalization)
  Sender: FDA-Public Use
  Company Number: PHHY2012GB105734

PATIENT
  Age: 83 Year
  Sex: Male

DRUGS (1)
  1. TEMAZEPAM [Suspect]
     Dosage: 10 mg, BID

REACTIONS (9)
  - Balance disorder [Unknown]
  - Abnormal behaviour [Unknown]
  - Emotional poverty [Unknown]
  - Incontinence [Unknown]
  - Aggression [Unknown]
  - Apathy [Unknown]
  - Disturbance in attention [Unknown]
  - Coordination abnormal [Unknown]
  - Incorrect drug administration duration [Unknown]
